FAERS Safety Report 23129389 (Version 1)
Quarter: 2023Q4

REPORT INFORMATION
  Report Type: Spontaneous
  Country: US (occurrence: None)
  Receive Date: 20231030
  Receipt Date: 20231030
  Transmission Date: 20240110
  Serious: Yes (Hospitalization, Disabling)
  Sender: FDA-Public Use
  Company Number: None

PATIENT
  Age: 26 Year
  Sex: Female
  Weight: 57.6 kg

DRUGS (4)
  1. LEVOFLOXACIN [Suspect]
     Active Substance: LEVOFLOXACIN
     Indication: Sinusitis
     Dosage: OTHER QUANTITY : 10 TABLET(S);?FREQUENCY : DAILY;?
     Route: 048
     Dates: start: 20230608, end: 20230609
  2. MAGNESIUM [Concomitant]
     Active Substance: MAGNESIUM
  3. PROBIOTICS NOS [Concomitant]
     Active Substance: PROBIOTICS NOS
  4. VITAMINS [Concomitant]
     Active Substance: VITAMINS

REACTIONS (12)
  - Myalgia [None]
  - Gait disturbance [None]
  - Muscle spasms [None]
  - Tremor [None]
  - Seizure like phenomena [None]
  - Muscle spasms [None]
  - Feeling cold [None]
  - Asthenia [None]
  - Tendonitis [None]
  - Muscular weakness [None]
  - Brain fog [None]
  - Limb discomfort [None]

NARRATIVE: CASE EVENT DATE: 20230608
